FAERS Safety Report 6077457-6 (Version None)
Quarter: 2009Q1

REPORT INFORMATION
  Report Type: 
  Country: None (occurrence: None)
  Receive Date: 20090213
  Receipt Date: 20081111
  Transmission Date: 20090719
  Serious: No
  Sender: FDA-Public Use
  Company Number: A0755801A

PATIENT

DRUGS (1)
  1. TREXIMET [Suspect]
     Indication: MIGRAINE
     Dosage: 1TAB UNKNOWN
     Route: 048
     Dates: start: 20080101, end: 20080101

REACTIONS (1)
  - GASTROINTESTINAL DISORDER [None]
